FAERS Safety Report 4307461-7 (Version None)
Quarter: 2004Q1

REPORT INFORMATION
  Report Type: 
  Country: None (occurrence: None)
  Receive Date: 20040226
  Receipt Date: 20040220
  Transmission Date: 20041129
  Serious: Yes (Death)
  Sender: FDA-Public Use
  Company Number: GB-JNJFOC-20040204457

PATIENT
  Age: 70 Year
  Sex: Female

DRUGS (7)
  1. REMICADE [Suspect]
     Indication: RHEUMATOID ARTHRITIS
     Dosage: INTRAVENOUS
     Route: 042
     Dates: start: 20021130
  2. DICLOFENAC SODIUM [Concomitant]
  3. SULPHASALAZINE (SULFAZALAZINE) [Concomitant]
  4. METHOTREXATE [Concomitant]
  5. ATENOLOL [Concomitant]
  6. NIFEDIPINE [Concomitant]
  7. PERINDOPRIL (PERINDOPRIL) [Concomitant]

REACTIONS (1)
  - CARDIAC FAILURE [None]
